FAERS Safety Report 15226974 (Version 2)
Quarter: 2018Q3

REPORT INFORMATION
  Report Type: Spontaneous
  Country: AU (occurrence: AU)
  Receive Date: 20180801
  Receipt Date: 20180801
  Transmission Date: 20181010
  Serious: Yes (Other)
  Sender: FDA-Public Use
  Company Number: PHHY2018AU055702

PATIENT
  Age: 12 Year
  Sex: Male

DRUGS (7)
  1. OMEPRAZOLE. [Suspect]
     Active Substance: OMEPRAZOLE
     Indication: PRODUCT USED FOR UNKNOWN INDICATION
     Dosage: UNK
     Route: 065
  2. DEXAMETHASONE. [Suspect]
     Active Substance: DEXAMETHASONE
     Dosage: 0.25 MG, QD (EVENING)
     Route: 065
  3. NIVOLUMAB [Suspect]
     Active Substance: NIVOLUMAB
     Indication: BRAIN STEM GLIOMA
     Dosage: UNK, Q2W
     Route: 042
     Dates: start: 20180321
  4. ONDANSETRON [Suspect]
     Active Substance: ONDANSETRON
     Indication: PRODUCT USED FOR UNKNOWN INDICATION
     Dosage: UNK
     Route: 065
  5. NIVOLUMAB [Suspect]
     Active Substance: NIVOLUMAB
     Dosage: UNK, Q2W
     Route: 042
     Dates: start: 20180711
  6. PARACETAMOL [Suspect]
     Active Substance: ACETAMINOPHEN
     Indication: PRODUCT USED FOR UNKNOWN INDICATION
     Dosage: UNK
     Route: 065
  7. DEXAMETHASONE. [Suspect]
     Active Substance: DEXAMETHASONE
     Indication: PRODUCT USED FOR UNKNOWN INDICATION
     Dosage: 0.5 MG, QD (MORNING)
     Route: 065

REACTIONS (9)
  - Speech disorder [Unknown]
  - Brain stem glioma [Unknown]
  - Hemiplegia [Unknown]
  - Headache [Unknown]
  - Cranial nerve disorder [Unknown]
  - Cushingoid [Unknown]
  - Hemiparesis [Unknown]
  - Ataxia [Unknown]
  - Metastases to spine [Unknown]

NARRATIVE: CASE EVENT DATE: 20180101
